FAERS Safety Report 7965435-9 (Version None)
Quarter: 2011Q4

REPORT INFORMATION
  Report Type: 
  Country: None (occurrence: None)
  Receive Date: 20111208
  Receipt Date: 20111207
  Transmission Date: 20120403
  Serious: Yes (Hospitalization)
  Sender: FDA-Public Use
  Company Number: JP-ABBOTT-11P-087-0875597-00

PATIENT
  Sex: Female
  Weight: 47.5 kg

DRUGS (15)
  1. REMIFENTANIL HYDROCHLORIDE [Suspect]
     Dates: start: 20110127, end: 20110127
  2. PROPOFOL [Concomitant]
     Dates: start: 20110127, end: 20110127
  3. FENTANYL [Suspect]
     Dates: start: 20110127, end: 20110127
  4. SEVOFLURANE [Suspect]
     Dates: start: 20110127, end: 20110127
  5. FLURBIPROFEN [Concomitant]
     Indication: PRODUCT USED FOR UNKNOWN INDICATION
     Route: 042
     Dates: start: 20110127, end: 20110127
  6. SEVOFLURANE [Suspect]
     Dates: start: 20110127, end: 20110127
  7. SEVOFLURANE [Suspect]
     Dates: start: 20110127, end: 20110127
  8. REMIFENTANIL HYDROCHLORIDE [Suspect]
     Indication: GENERAL ANAESTHESIA
     Route: 042
     Dates: start: 20110127, end: 20110127
  9. REMIFENTANIL HYDROCHLORIDE [Suspect]
     Dates: start: 20110127, end: 20110127
  10. FENTANYL [Suspect]
     Indication: GENERAL ANAESTHESIA
     Route: 042
     Dates: start: 20110127, end: 20110127
  11. PROPOFOL [Concomitant]
     Indication: GENERAL ANAESTHESIA
     Route: 042
     Dates: start: 20110127, end: 20110127
  12. SEVOFLURANE [Suspect]
     Indication: GENERAL ANAESTHESIA
     Dosage: 0.5-4.0%
     Route: 055
     Dates: start: 20110127, end: 20110127
  13. SEVOFLURANE [Suspect]
     Dates: start: 20110127, end: 20110127
  14. ROCURONIUM BROMIDE [Concomitant]
     Indication: GENERAL ANAESTHESIA
     Route: 042
     Dates: start: 20110127, end: 20110127
  15. LIDOCAINE [Concomitant]
     Indication: PRODUCT USED FOR UNKNOWN INDICATION
     Route: 042
     Dates: start: 20110127, end: 20110127

REACTIONS (9)
  - HEART RATE INCREASED [None]
  - STRESS CARDIOMYOPATHY [None]
  - MALNUTRITION [None]
  - BLOOD PRESSURE INCREASED [None]
  - DEHYDRATION [None]
  - ELECTROCARDIOGRAM ST SEGMENT DEPRESSION [None]
  - BLOOD ELECTROLYTES ABNORMAL [None]
  - DELAYED RECOVERY FROM ANAESTHESIA [None]
  - RENAL IMPAIRMENT [None]
